FAERS Safety Report 13407486 (Version 1)
Quarter: 2017Q2

REPORT INFORMATION
  Report Type: Report from Study
  Country: None (occurrence: US)
  Receive Date: 20170405
  Receipt Date: 20170405
  Transmission Date: 20170830
  Serious: Yes (Other)
  Sender: FDA-Public Use
  Company Number: US-ABBVIE-16K-163-1671551-00

PATIENT
  Sex: Female

DRUGS (7)
  1. PITOCIN [Concomitant]
     Active Substance: OXYTOCIN
     Indication: LABOUR INDUCTION
     Route: 065
     Dates: start: 20161213, end: 20161213
  2. ASPIRIN. [Concomitant]
     Active Substance: ASPIRIN
     Indication: CEREBROVASCULAR ACCIDENT
     Route: 048
     Dates: start: 2012, end: 2016
  3. LOVENOX [Concomitant]
     Active Substance: ENOXAPARIN SODIUM
     Indication: CEREBROVASCULAR ACCIDENT
     Dates: start: 2016, end: 2016
  4. ASPIRIN. [Concomitant]
     Active Substance: ASPIRIN
     Route: 048
     Dates: start: 2016, end: 201612
  5. HUMIRA [Suspect]
     Active Substance: ADALIMUMAB
     Indication: EXPOSURE VIA BODY FLUID
     Route: 050
  6. PRENATAL VITAMINS [Concomitant]
     Active Substance: VITAMINS
     Indication: PRODUCT USED FOR UNKNOWN INDICATION
     Dates: start: 2016
  7. ASPIRIN. [Concomitant]
     Active Substance: ASPIRIN
     Route: 048
     Dates: start: 201612

REACTIONS (5)
  - Exposure during pregnancy [Unknown]
  - Prolonged labour [Recovered/Resolved]
  - Paternal drugs affecting foetus [Unknown]
  - Gallbladder pain [Recovered/Resolved]
  - Suppressed lactation [Recovered/Resolved]

NARRATIVE: CASE EVENT DATE: 2016
